FAERS Safety Report 21141428 (Version 1)
Quarter: 2022Q3

REPORT INFORMATION
  Report Type: Spontaneous
  Country: US (occurrence: US)
  Receive Date: 20220728
  Receipt Date: 20220728
  Transmission Date: 20221027
  Serious: No
  Sender: FDA-Public Use
  Company Number: US-drreddys-SPO/USA/22/0152358

PATIENT
  Age: 14 Year
  Sex: Male

DRUGS (1)
  1. ZENATANE [Suspect]
     Active Substance: ISOTRETINOIN
     Indication: Acne
     Dosage: RMA ISSUE DATE: 16 JUNE 2022 04:06:20 PM, 13 MAY 2022 09:46:51 AM, 11 APRIL 2022 03:02:38 PM, 10 MAR

REACTIONS (1)
  - Adverse drug reaction [Unknown]
